FAERS Safety Report 9315759 (Version 1)
Quarter: 2013Q2

REPORT INFORMATION
  Report Type: Spontaneous
  Country: PR (occurrence: PR)
  Receive Date: 20130529
  Receipt Date: 20130529
  Transmission Date: 20140414
  Serious: Yes (Other)
  Sender: FDA-Public Use
  Company Number: PR-BAXTER-2013BAX019639

PATIENT
  Sex: Female

DRUGS (2)
  1. 8% HEPATASOL-SULFITE-FREE (AMINO ACID) INJECTION 500 ML. [Suspect]
     Indication: PARENTERAL NUTRITION
     Dosage: 3 G/KG
     Route: 042
     Dates: start: 20130520, end: 20130521
  2. 70% DEXTROSE INJECTION USP [Suspect]
     Indication: PARENTERAL NUTRITION
     Route: 042
     Dates: start: 20130520, end: 20130521

REACTIONS (2)
  - Product label on wrong product [Recovered/Resolved]
  - No adverse event [Recovered/Resolved]
